FAERS Safety Report 6057913-7 (Version None)
Quarter: 2009Q1

REPORT INFORMATION
  Report Type: 
  Country: None (occurrence: None)
  Receive Date: 20090129
  Receipt Date: 20090120
  Transmission Date: 20090719
  Serious: Yes (Other)
  Sender: FDA-Public Use
  Company Number: US-MERCK-0901USA02986

PATIENT
  Age: 70 Year
  Sex: Female

DRUGS (2)
  1. ZOCOR [Suspect]
     Route: 048
  2. AMIODARONE [Suspect]
     Route: 065

REACTIONS (3)
  - CARDIOVASCULAR DISORDER [None]
  - HYPERGLYCAEMIA [None]
  - RASH PRURITIC [None]
